FAERS Safety Report 16247301 (Version 1)
Quarter: 2019Q2

REPORT INFORMATION
  Report Type: Spontaneous
  Country: US (occurrence: US)
  Receive Date: 20190322
  Receipt Date: 20190322
  Transmission Date: 20190711
  Serious: Yes (Hospitalization)
  Sender: FDA-Public Use
  Company Number: None

PATIENT
  Age: 67 Year
  Sex: Female

DRUGS (23)
  1. FOLIC ACID CAP 5MG [Concomitant]
  2. METOPROLOL TARTRATE. [Concomitant]
     Active Substance: METOPROLOL TARTRATE
  3. SIMVASTATIN TAB 10MG [Concomitant]
     Active Substance: SIMVASTATIN
  4. METHOTREXATE TAB 2.5MG [Concomitant]
     Active Substance: METHOTREXATE
  5. GLUCOSAMINE CAP 500MG [Concomitant]
  6. COQ10 CAP 100MG [Concomitant]
  7. PROBIOTIC CAP [Concomitant]
  8. MAGNESIUM CAP 500MG [Concomitant]
  9. METOPROL SUC TAB 100MG ER [Concomitant]
  10. FIBER CAP 0.52GM [Concomitant]
  11. D 1000 CAP [Concomitant]
  12. MULTI CAP COMPLETE [Concomitant]
  13. OMEPRAZOLE CAP 10MG [Concomitant]
  14. TIZANIDINE CAP 2MG [Concomitant]
     Active Substance: TIZANIDINE
  15. FOSAMAX TAB 70MG [Concomitant]
  16. CHONDROITIN CAP COMPLEX [Concomitant]
  17. AMTRIPTYLIN TAB 100MG [Concomitant]
  18. FLONASE SPR 0L05% [Concomitant]
  19. ENBREL [Suspect]
     Active Substance: ETANERCEPT
     Indication: RHEUMATOID ARTHRITIS
     Route: 058
     Dates: start: 20150428
  20. FLAX SEED CAP 1000MG [Concomitant]
  21. MELOXICAM TAB 15MG [Concomitant]
     Active Substance: MELOXICAM
  22. FISH OIL CAP 1000MG [Concomitant]
  23. ALENDRONATE [Concomitant]
     Active Substance: ALENDRONATE SODIUM

REACTIONS (4)
  - Surgery [None]
  - Therapy cessation [None]
  - Rheumatoid arthritis [None]
  - Pain [None]
